FAERS Safety Report 23863451 (Version 1)
Quarter: 2024Q2

REPORT INFORMATION
  Report Type: Spontaneous
  Country: US (occurrence: US)
  Receive Date: 20240516
  Receipt Date: 20240516
  Transmission Date: 20240716
  Serious: No
  Sender: FDA-Public Use
  Company Number: US-BAYER-2024A069037

PATIENT
  Age: 78 Year
  Sex: Female

DRUGS (2)
  1. MIRALAX [Suspect]
     Active Substance: POLYETHYLENE GLYCOL 3350
     Indication: Gastrointestinal disorder
     Dosage: 1 DF, QOD; SINCE APRIL/2024
     Route: 048
     Dates: start: 202403
  2. METOPROLOL [Concomitant]
     Active Substance: METOPROLOL

REACTIONS (2)
  - Drug effective for unapproved indication [Recovering/Resolving]
  - Product prescribing error [Unknown]

NARRATIVE: CASE EVENT DATE: 20240401
